FAERS Safety Report 23961363 (Version 3)
Quarter: 2024Q3

REPORT INFORMATION
  Report Type: Spontaneous
  Country: US (occurrence: US)
  Receive Date: 20240611
  Receipt Date: 20240821
  Transmission Date: 20241017
  Serious: Yes (Other)
  Sender: MYLAN
  Company Number: US-MYLANLABS-2024M1050464

PATIENT
  Age: 42 Year
  Sex: Female
  Weight: 49.9 kg

DRUGS (1)
  1. TYRVAYA [Suspect]
     Active Substance: VARENICLINE TARTRATE
     Indication: Dry eye
     Dosage: 0.03 MILLIGRAM, BID (EVERYDAY)
     Route: 045

REACTIONS (3)
  - Injury associated with device [Unknown]
  - Off label use [Unknown]
  - Device breakage [Unknown]

NARRATIVE: CASE EVENT DATE: 20240527
